FAERS Safety Report 8508888-X (Version None)
Quarter: 2012Q3

REPORT INFORMATION
  Report Type: 
  Country: None (occurrence: None)
  Receive Date: 20120713
  Receipt Date: 20120706
  Transmission Date: 20120928
  Serious: Yes (Hospitalization)
  Sender: FDA-Public Use
  Company Number: PHHY2012CN058354

PATIENT
  Sex: Male
  Weight: 3.5 kg

DRUGS (2)
  1. HALOPERIDOL [Suspect]
     Dosage: MATERNAL DOSE 4 MG TID
     Route: 064
  2. CLOZAPINE [Suspect]
     Dosage: MATERNAL DOSE 50 MG TID
     Route: 064

REACTIONS (13)
  - CONVULSION [None]
  - LIVER FUNCTION TEST ABNORMAL [None]
  - JAUNDICE [None]
  - VOMITING [None]
  - IRRITABILITY [None]
  - MUSCLE TIGHTNESS [None]
  - MUSCLE TWITCHING [None]
  - DRUG WITHDRAWAL SYNDROME NEONATAL [None]
  - FEEDING DISORDER NEONATAL [None]
  - FOETAL EXPOSURE DURING PREGNANCY [None]
  - CYANOSIS [None]
  - POOR SUCKING REFLEX [None]
  - OEDEMA PERIPHERAL [None]
